FAERS Safety Report 14502702 (Version 1)
Quarter: 2018Q1

REPORT INFORMATION
  Report Type: Report from Study
  Country: US (occurrence: US)
  Receive Date: 20180208
  Receipt Date: 20180208
  Transmission Date: 20180509
  Serious: Yes (Other)
  Sender: FDA-Public Use
  Company Number: US-ARIAD PHARMACEUTICALS, INC-2017US008872

PATIENT
  Sex: Female

DRUGS (1)
  1. PONATINIB [Suspect]
     Active Substance: PONATINIB
     Indication: CHRONIC MYELOID LEUKAEMIA (IN REMISSION)
     Dosage: 15 MG, QD
     Route: 048
     Dates: start: 201403

REACTIONS (6)
  - Hypertension [Unknown]
  - Neuropathy peripheral [Unknown]
  - Clubbing [Unknown]
  - Carpal tunnel syndrome [Unknown]
  - Pulmonary granuloma [Unknown]
  - Conjunctivitis [Unknown]
